FAERS Safety Report 4350132-1 (Version None)
Quarter: 2004Q2

REPORT INFORMATION
  Report Type: 
  Country: None (occurrence: None)
  Receive Date: 20040429
  Receipt Date: 20040419
  Transmission Date: 20050107
  Serious: Yes (Hospitalization)
  Sender: FDA-Public Use
  Company Number: HU-ROCHE-364737

PATIENT
  Age: 75 Year
  Sex: Female
  Weight: 42.5 kg

DRUGS (7)
  1. IBANDRONIC ACID [Suspect]
     Indication: OSTEOPOROSIS POSTMENOPAUSAL
     Dosage: DOSE AND FREQUENCY BLINDED
     Route: 048
     Dates: start: 20020808
  2. MERCKFORMIN [Concomitant]
  3. EDNYT [Concomitant]
  4. DIGOXIN [Concomitant]
  5. AMILORID [Concomitant]
  6. CAVINTON [Concomitant]
  7. HYDROCHLOROTHIAZIDE [Concomitant]

REACTIONS (3)
  - GASTRIC HAEMORRHAGE [None]
  - GASTRIC ULCER [None]
  - MELAENA [None]
